FAERS Safety Report 4266039-4 (Version None)
Quarter: 2004Q1

REPORT INFORMATION
  Report Type: 
  Country: None (occurrence: None)
  Receive Date: 20040106
  Receipt Date: 20031222
  Transmission Date: 20041129
  Serious: Yes (Other)
  Sender: FDA-Public Use
  Company Number: 200321752GDDC

PATIENT
  Age: 42 Year
  Sex: Female
  Weight: 101 kg

DRUGS (2)
  1. LANTUS [Suspect]
     Indication: DIABETES MELLITUS
     Dosage: 10 U HS SC
     Route: 058
     Dates: start: 20030117, end: 20031116
  2. INSULIN (ACTRAPID) [Concomitant]

REACTIONS (1)
  - FURUNCLE [None]
